FAERS Safety Report 7133100-6 (Version None)
Quarter: 2010Q4

REPORT INFORMATION
  Report Type: 
  Country: None (occurrence: None)
  Receive Date: 20101202
  Receipt Date: 20101124
  Transmission Date: 20110411
  Serious: Yes (Other)
  Sender: FDA-Public Use
  Company Number: B0687128A

PATIENT
  Sex: Female

DRUGS (1)
  1. LAMICTAL [Suspect]
     Indication: HERPES ZOSTER
     Dosage: 50MG PER DAY
     Route: 065
     Dates: start: 20101101, end: 20101101

REACTIONS (3)
  - BLOOD AMYLASE INCREASED [None]
  - HEPATITIS ACUTE [None]
  - RASH [None]
